FAERS Safety Report 6515110-2 (Version None)
Quarter: 2009Q4

REPORT INFORMATION
  Report Type: 
  Country: None (occurrence: None)
  Receive Date: 20091223
  Receipt Date: 20091211
  Transmission Date: 20100525
  Serious: Yes (Hospitalization)
  Sender: FDA-Public Use
  Company Number: ZA-EISAI INC.-E3810-03327-CLI-ZA

PATIENT
  Sex: Female
  Weight: 11.5 kg

DRUGS (2)
  1. RABEPRAZOLE SODIUM [Suspect]
     Dosage: 0.5MG/KG
     Route: 048
     Dates: start: 20091028, end: 20091122
  2. RABEPRAZOLE SODIUM [Suspect]
     Dosage: BLINDED DOSE
     Route: 048
     Dates: start: 20090930, end: 20091027

REACTIONS (1)
  - BRONCHOPNEUMONIA [None]
